FAERS Safety Report 6332115-5 (Version None)
Quarter: 2009Q3

REPORT INFORMATION
  Report Type: 
  Country: None (occurrence: None)
  Receive Date: 20090828
  Receipt Date: 20090819
  Transmission Date: 20100115
  Serious: Yes (Hospitalization)
  Sender: FDA-Public Use
  Company Number: DE-BAYER-200918965GPV

PATIENT
  Age: 64 Year
  Sex: Female
  Weight: 77 kg

DRUGS (4)
  1. BETAFERON [Suspect]
     Indication: MULTIPLE SCLEROSIS
     Route: 058
     Dates: start: 20010101
  2. INSULIN [Concomitant]
     Indication: TYPE 2 DIABETES MELLITUS
  3. HEPARIN [Concomitant]
     Indication: THROMBOSIS PROPHYLAXIS
  4. ANTIHYPERTENSIVES [Concomitant]
     Indication: ESSENTIAL HYPERTENSION

REACTIONS (1)
  - IRON DEFICIENCY ANAEMIA [None]
